FAERS Safety Report 4623437-4 (Version None)
Quarter: 2005Q1

REPORT INFORMATION
  Report Type: 
  Country: None (occurrence: None)
  Receive Date: 20050330
  Receipt Date: 20041215
  Transmission Date: 20050727
  Serious: Yes (Hospitalization, Other)
  Sender: FDA-Public Use
  Company Number: US-MERCK-0412USA02046

PATIENT
  Age: 75 Year
  Sex: Female
  Weight: 58 kg

DRUGS (9)
  1. VIOXX [Suspect]
     Indication: ARTHRITIS
     Route: 048
     Dates: start: 20010101, end: 20010609
  2. VIOXX [Suspect]
     Route: 048
     Dates: start: 20010610, end: 20021201
  3. VIOXX [Suspect]
     Indication: SPINAL COLUMN STENOSIS
     Route: 048
     Dates: start: 20010101, end: 20010609
  4. VIOXX [Suspect]
     Route: 048
     Dates: start: 20010610, end: 20021201
  5. LIPITOR [Concomitant]
     Route: 065
  6. DURAGESIC-100 [Concomitant]
     Route: 065
  7. PREVACID [Concomitant]
     Route: 065
  8. PERI-COLACE [Concomitant]
     Route: 065
  9. SENOKOT [Concomitant]
     Route: 065

REACTIONS (35)
  - ACTIVITIES OF DAILY LIVING IMPAIRED [None]
  - ACUTE MYOCARDIAL INFARCTION [None]
  - ANAEMIA [None]
  - ASTHENIA [None]
  - ATRIAL FIBRILLATION [None]
  - AXILLARY PAIN [None]
  - BLOOD CREATININE INCREASED [None]
  - BLOOD PRESSURE FLUCTUATION [None]
  - BLOOD UREA INCREASED [None]
  - BRAIN NATRIURETIC PEPTIDE INCREASED [None]
  - CARDIAC FAILURE CONGESTIVE [None]
  - CEREBROVASCULAR ACCIDENT [None]
  - CONSTIPATION [None]
  - CORONARY ARTERY DISEASE [None]
  - CORONARY ARTERY OCCLUSION [None]
  - CORONARY ARTERY STENOSIS [None]
  - DEHYDRATION [None]
  - DEPRESSION [None]
  - EJECTION FRACTION DECREASED [None]
  - EMOTIONAL DISTRESS [None]
  - GASTRIC ULCER [None]
  - HAEMODYNAMIC INSTABILITY [None]
  - HYPERLIPIDAEMIA [None]
  - HYPOTENSION [None]
  - ISCHAEMIC CARDIOMYOPATHY [None]
  - MITRAL VALVE INCOMPETENCE [None]
  - PANIC ATTACK [None]
  - PLEURAL EFFUSION [None]
  - POST PROCEDURAL COMPLICATION [None]
  - RESPIRATORY FAILURE [None]
  - THROAT TIGHTNESS [None]
  - ULCER [None]
  - VENTRICULAR EXTRASYSTOLES [None]
  - VOMITING [None]
  - WEIGHT DECREASED [None]
